FAERS Safety Report 8543068-3 (Version None)
Quarter: 2012Q2

REPORT INFORMATION
  Report Type: 
  Country: None (occurrence: None)
  Receive Date: 20120412
  Receipt Date: 20090924
  Transmission Date: 20120825
  Serious: Yes (Other)
  Sender: FDA-Public Use
  Company Number: PHEH2007US09047

PATIENT
  Sex: Female

DRUGS (1)
  1. AREDIA [Suspect]
     Dosage: INFUSION

REACTIONS (5)
  - GENERAL PHYSICAL HEALTH DETERIORATION [None]
  - PAIN [None]
  - OSTEONECROSIS [None]
  - ANXIETY [None]
  - DECREASED INTEREST [None]
